FAERS Safety Report 25235782 (Version 1)
Quarter: 2025Q2

REPORT INFORMATION
  Report Type: Report from Study
  Country: US (occurrence: US)
  Receive Date: 20250424
  Receipt Date: 20250424
  Transmission Date: 20250717
  Serious: Yes (Other)
  Sender: GLAXOSMITHKLINE
  Company Number: US-GLAXOSMITHKLINE INC-US2025047122

PATIENT

DRUGS (6)
  1. BELIMUMAB [Suspect]
     Active Substance: BELIMUMAB
     Indication: Systemic lupus erythematosus
     Dates: start: 202101
  2. BELIMUMAB [Suspect]
     Active Substance: BELIMUMAB
     Indication: Rheumatic disorder
  3. BELIMUMAB [Suspect]
     Active Substance: BELIMUMAB
     Indication: Rheumatoid arthritis
  4. BELIMUMAB [Suspect]
     Active Substance: BELIMUMAB
     Indication: Nephrotic syndrome
  5. HYDROXYCHLOROQUINE [Concomitant]
     Active Substance: HYDROXYCHLOROQUINE
     Indication: Product used for unknown indication
  6. LOSARTAN [Concomitant]
     Active Substance: LOSARTAN
     Indication: Blood pressure measurement

REACTIONS (3)
  - Systemic lupus erythematosus [Unknown]
  - Renal disorder [Not Recovered/Not Resolved]
  - Product use in unapproved indication [Unknown]

NARRATIVE: CASE EVENT DATE: 20210101
